FAERS Safety Report 4785852-8 (Version None)
Quarter: 2005Q3

REPORT INFORMATION
  Report Type: 
  Country: None (occurrence: None)
  Receive Date: 20050929
  Receipt Date: 20050920
  Transmission Date: 20060218
  Serious: Yes (Hospitalization, Other)
  Sender: FDA-Public Use
  Company Number: 2005132220

PATIENT
  Age: 38 Year
  Sex: Female
  Weight: 55.3388 kg

DRUGS (6)
  1. CELEBREX [Suspect]
     Indication: ARTHRITIS
     Dosage: 200 MG (200 MG, 1 IN 1 D)
     Dates: start: 20040101
  2. GENITO URINARY SYSTEM AND SEX HORMONES (GENITO URINARY SYSTEM AND SEX [Suspect]
     Indication: HORMONE REPLACEMENT THERAPY
     Dosage: TOPICAL
     Route: 061
     Dates: start: 20050627
  3. TOPAMAX [Concomitant]
  4. PERCOCET [Concomitant]
  5. TIZANIDINE (TIZANDINE) [Concomitant]
  6. CLONIDINE [Concomitant]

REACTIONS (5)
  - CARDIAC FLUTTER [None]
  - ENDOMETRIOSIS [None]
  - FEELING ABNORMAL [None]
  - HOT FLUSH [None]
  - LOSS OF CONSCIOUSNESS [None]
